FAERS Safety Report 5069062-5 (Version None)
Quarter: 2006Q3

REPORT INFORMATION
  Report Type: 
  Country: None (occurrence: None)
  Receive Date: 20060731
  Receipt Date: 20060719
  Transmission Date: 20061208
  Serious: Yes (Hospitalization)
  Sender: FDA-Public Use
  Company Number: 2006VX000846

PATIENT
  Age: 50 Year
  Sex: Female

DRUGS (4)
  1. INTERFERON ALFACON-1 [Suspect]
     Indication: HEPATITIS C
     Dosage: 15 UG QD SC
     Route: 058
     Dates: start: 20060407
  2. RIBAVIRIN [Concomitant]
  3. CARBATROL [Concomitant]
  4. EFFEXOR [Concomitant]

REACTIONS (3)
  - ANIMAL BITE [None]
  - INFECTION [None]
  - PYREXIA [None]
